FAERS Safety Report 17698261 (Version 7)
Quarter: 2025Q2

REPORT INFORMATION
  Report Type: Spontaneous
  Country: US (occurrence: US)
  Receive Date: 20200423
  Receipt Date: 20250403
  Transmission Date: 20250716
  Serious: No
  Sender: PFIZER
  Company Number: US-PFIZER INC-2020158561

PATIENT
  Age: 66 Year
  Sex: Female
  Weight: 62.585 kg

DRUGS (12)
  1. XELJANZ XR [Suspect]
     Active Substance: TOFACITINIB CITRATE
     Indication: Rheumatoid arthritis
     Dosage: 11 MG, 1X/DAY
     Route: 048
     Dates: start: 2020, end: 2020
  2. XELJANZ XR [Suspect]
     Active Substance: TOFACITINIB CITRATE
     Dosage: 11 MG, 1X/DAY
     Route: 048
  3. BUDESONIDE [Concomitant]
     Active Substance: BUDESONIDE
  4. EZETIMIBE [Concomitant]
     Active Substance: EZETIMIBE
  5. FLUCONAZOLE [Concomitant]
     Active Substance: FLUCONAZOLE
  6. LATANOPROST [Concomitant]
     Active Substance: LATANOPROST
  7. LEVALBUTEROL HYDROCHLORIDE [Concomitant]
     Active Substance: LEVALBUTEROL HYDROCHLORIDE
  8. LOSARTAN POTASSIUM [Concomitant]
     Active Substance: LOSARTAN POTASSIUM
  9. NAPROXEN [Concomitant]
     Active Substance: NAPROXEN
  10. OMEPRAZOLE [Concomitant]
     Active Substance: OMEPRAZOLE
  11. PROPRANOLOL [Concomitant]
     Active Substance: PROPRANOLOL HYDROCHLORIDE
  12. TRAMADOL [Concomitant]
     Active Substance: TRAMADOL

REACTIONS (2)
  - Malaise [Recovering/Resolving]
  - Illness [Unknown]
